FAERS Safety Report 9258523 (Version 1)
Quarter: 2013Q2

REPORT INFORMATION
  Report Type: Spontaneous
  Country: US (occurrence: US)
  Receive Date: 20130426
  Receipt Date: 20130426
  Transmission Date: 20140414
  Serious: No
  Sender: FDA-Public Use
  Company Number: US-009507513-1304USA007718

PATIENT
  Age: 53 Year
  Sex: Male
  Weight: 114.29 kg

DRUGS (6)
  1. VICTRELIS [Suspect]
     Indication: HEPATITIS C
     Dosage: 800 MG, Q8H
     Route: 048
     Dates: start: 20130130
  2. PEGASYS [Suspect]
     Dosage: UNK
     Dates: start: 201202
  3. RIBASPHERE [Suspect]
     Dosage: UNK
     Dates: start: 201202
  4. TACROLIMUS [Concomitant]
     Dosage: 1 MG, BID
  5. XIFAXAN [Concomitant]
     Dosage: 550 MG, BID
  6. PROMACTA [Concomitant]
     Dosage: 25 MG, QD

REACTIONS (3)
  - Red blood cell count decreased [Unknown]
  - Platelet count decreased [Unknown]
  - Diarrhoea [Unknown]
